FAERS Safety Report 25148174 (Version 1)
Quarter: 2025Q2

REPORT INFORMATION
  Report Type: Spontaneous
  Country: US (occurrence: US)
  Receive Date: 20250402
  Receipt Date: 20250402
  Transmission Date: 20250716
  Serious: Yes (Other)
  Sender: COOPERSURGICAL
  Company Number: US-COOPERSURGICAL, INC.-2025CPS002289

PATIENT
  Age: 50 Year
  Sex: Female
  Weight: 89.796 kg

DRUGS (5)
  1. PARAGARD T 380A [Suspect]
     Active Substance: COPPER
     Route: 015
     Dates: start: 20100614
  2. LABETALOL [Concomitant]
     Active Substance: LABETALOL
     Dates: start: 201004
  3. TRIAMTERENE [Concomitant]
     Active Substance: TRIAMTERENE
     Dates: start: 202109
  4. LOSARTAN [Concomitant]
     Active Substance: LOSARTAN
     Dates: start: 202111
  5. ALBUTEROL [Concomitant]
     Active Substance: ALBUTEROL

REACTIONS (9)
  - Uterine leiomyoma [Unknown]
  - Polypectomy [Recovered/Resolved]
  - Hysterectomy [Recovered/Resolved]
  - Device breakage [Recovered/Resolved]
  - Foreign body in reproductive tract [Recovered/Resolved]
  - Complication of device removal [Recovered/Resolved]
  - Emotional disorder [Unknown]
  - Intentional device use issue [Recovered/Resolved]
  - Off label use [Unknown]

NARRATIVE: CASE EVENT DATE: 20210901
